FAERS Safety Report 5526459-4 (Version None)
Quarter: 2007Q4

REPORT INFORMATION
  Report Type: 
  Country: None (occurrence: None)
  Receive Date: 20071127
  Receipt Date: 20071116
  Transmission Date: 20080405
  Serious: Yes (Hospitalization)
  Sender: FDA-Public Use
  Company Number: US-JNJFOC-20071106955

PATIENT
  Sex: Male
  Weight: 84.37 kg

DRUGS (2)
  1. RISPERDAL CONSTA [Suspect]
     Indication: SCHIZOPHRENIA
     Route: 030
  2. PROLIXIN DECANOATE [Concomitant]
     Indication: SCHIZOPHRENIA
     Route: 030

REACTIONS (2)
  - DRUG DOSE OMISSION [None]
  - PSYCHOTIC DISORDER [None]
